FAERS Safety Report 9325945 (Version 3)
Quarter: 2013Q3

REPORT INFORMATION
  Report Type: Spontaneous
  Country: US (occurrence: US)
  Receive Date: 20130604
  Receipt Date: 20130910
  Transmission Date: 20140515
  Serious: Yes (Other)
  Sender: FDA-Public Use
  Company Number: US-PFIZER INC-2013166250

PATIENT
  Age: 57 Year
  Sex: Male

DRUGS (6)
  1. SUTENT [Suspect]
     Indication: THYROID CANCER
     Dosage: 50 MG, DAILY
     Route: 048
     Dates: start: 20130205, end: 20130421
  2. SUTENT [Suspect]
     Dosage: 37.5 MG, DAILY FOR 28 DAYS ON 14 DAYS OFF
     Route: 048
     Dates: start: 20130422
  3. ASPIRIN [Concomitant]
     Dosage: UNK
  4. BENAZEPRIL [Concomitant]
     Dosage: UNK
  5. FLOMAX [Concomitant]
     Dosage: UNK
  6. LEVOTHYROXINE [Concomitant]
     Dosage: UNK

REACTIONS (6)
  - Off label use [Unknown]
  - Burning sensation [Unknown]
  - Paraesthesia [Unknown]
  - Urticaria [Not Recovered/Not Resolved]
  - Stomatitis [Recovering/Resolving]
  - Oral discomfort [Recovering/Resolving]
